FAERS Safety Report 17954252 (Version 1)
Quarter: 2020Q2

REPORT INFORMATION
  Report Type: Spontaneous
  Country: GB (occurrence: GB)
  Receive Date: 20200629
  Receipt Date: 20200629
  Transmission Date: 20200714
  Serious: Yes (Hospitalization, Other)
  Sender: FDA-Public Use
  Company Number: GB-AUROBINDO-AUR-APL-2020-025417

PATIENT
  Age: 67 Year
  Sex: Male

DRUGS (16)
  1. VORICONAZOLE. [Suspect]
     Active Substance: VORICONAZOLE
     Dosage: 6 MILLIGRAM/KILOGRAM, TWO TIMES A DAY
     Route: 042
     Dates: start: 2014, end: 2014
  2. FLUCYTOSINE. [Concomitant]
     Active Substance: FLUCYTOSINE
     Indication: IMMUNOSUPPRESSANT DRUG THERAPY
     Dosage: UNK
     Route: 042
     Dates: start: 2014
  3. FLUCYTOSINE. [Concomitant]
     Active Substance: FLUCYTOSINE
     Dosage: 1.5 GRAM, FOUR TIMES/DAY
     Route: 048
  4. TACROLIMUS. [Suspect]
     Active Substance: TACROLIMUS
     Indication: IMMUNOSUPPRESSANT DRUG THERAPY
     Dosage: UNK
     Route: 065
     Dates: start: 2014
  5. AMPHOTERICIN B. [Suspect]
     Active Substance: AMPHOTERICIN B
     Indication: PHAEOHYPHOMYCOSIS
     Dosage: 5 MILLIGRAM/KILOGRAM, ONCE A DAY
     Route: 065
     Dates: start: 2014
  6. PREDNISOLONE. [Suspect]
     Active Substance: PREDNISOLONE
     Indication: IMMUNOSUPPRESSANT DRUG THERAPY
     Dosage: 20 MILLIGRAM, ONCE A DAY (TREATMENT CONTINUED AT A DOSE OF 7.5 MG/DAY)
     Route: 065
     Dates: start: 2014
  7. POSACONAZOLE [Suspect]
     Active Substance: POSACONAZOLE
     Indication: PHAEOHYPHOMYCOSIS
     Dosage: 300 MILLIGRAM, ONCE A DAY (DISCONTINUED AFTER EIGHT DOSES (DAY 17)
     Route: 042
     Dates: start: 2014, end: 2014
  8. PREDNISOLONE. [Concomitant]
     Active Substance: PREDNISOLONE
     Indication: IMMUNOSUPPRESSION
     Dosage: 20 MILLIGRAM, ONCE A DAY
     Route: 065
  9. VORICONAZOLE. [Suspect]
     Active Substance: VORICONAZOLE
     Indication: FUNGAL INFECTION
     Dosage: 6 MILLIGRAM/KILOGRAM, TWO TIMES A DAY (12 MG)
     Route: 042
  10. ALEMTUZUMAB [Suspect]
     Active Substance: ALEMTUZUMAB
     Indication: IMMUNOSUPPRESSANT DRUG THERAPY
     Dosage: 30 MILLIGRAM
     Route: 058
     Dates: start: 2014
  11. POSACONAZOLE [Suspect]
     Active Substance: POSACONAZOLE
     Indication: PHAEOHYPHOMYCOSIS
     Dosage: 300 MILLIGRAM, TWO TIMES A DAY (300MG BID FOR TWO DOSES, FOLLOWED BY 300MG DAILY)
     Route: 048
     Dates: start: 2014, end: 2014
  12. METHYLPREDNISOLONE. [Suspect]
     Active Substance: METHYLPREDNISOLONE
     Indication: IMMUNOSUPPRESSANT DRUG THERAPY
     Dosage: 500 MILLIGRAM
     Route: 042
     Dates: start: 2014
  13. POSACONAZOLE [Suspect]
     Active Substance: POSACONAZOLE
     Indication: PHAEOHYPHOMYCOSIS
     Dosage: 300 MILLIGRAM, ONCE A DAY
     Route: 048
     Dates: start: 2014
  14. AMOXICILLIN. [Concomitant]
     Active Substance: AMOXICILLIN
     Indication: PHAEOHYPHOMYCOSIS
     Dosage: 1 GRAM, 3 TIMES A DAY
     Route: 048
     Dates: start: 2014
  15. VORICONAZOLE. [Suspect]
     Active Substance: VORICONAZOLE
     Dosage: UNK, CEMENT SPACER CONTAINING VORICONAZOLE IN THE RIGHT DISTAL FIBULA
     Route: 065
     Dates: start: 2014
  16. VORICONAZOLE. [Suspect]
     Active Substance: VORICONAZOLE
     Indication: PHAEOHYPHOMYCOSIS
     Dosage: 4 MILLIGRAM/KILOGRAM, TWO TIMES A DAY
     Route: 042

REACTIONS (6)
  - Blood alkaline phosphatase increased [Unknown]
  - Enterococcal infection [Recovering/Resolving]
  - Lymphopenia [Unknown]
  - Brain abscess [Recovered/Resolved with Sequelae]
  - Phaeohyphomycosis [Recovered/Resolved with Sequelae]
  - Pain in extremity [Unknown]
